FAERS Safety Report 7349713-2 (Version None)
Quarter: 2011Q1

REPORT INFORMATION
  Report Type: 
  Country: None (occurrence: None)
  Receive Date: 20110314
  Receipt Date: 20110215
  Transmission Date: 20110831
  Serious: Yes (Other)
  Sender: FDA-Public Use
  Company Number: US-BAYER-201036686NA

PATIENT
  Sex: Female
  Weight: 99.79 kg

DRUGS (9)
  1. YAZ [Suspect]
     Indication: PRODUCT USED FOR UNKNOWN INDICATION
  2. UNCODEABLE ^UNCLASSIFIABLE^ [Concomitant]
     Dosage: 15 MG, UNK
     Route: 048
  3. LIDODERM [Concomitant]
     Route: 061
  4. FLECTOR [Concomitant]
     Route: 061
  5. LYRICA [Concomitant]
     Dosage: 150 MG, UNK
  6. ROBAXIN [Concomitant]
     Dosage: 750 MG, BID
     Route: 048
  7. COLACE [Concomitant]
  8. LORTAB [Concomitant]
     Dosage: 7.5 MG, UNK
  9. PERCOCET [Concomitant]
     Dosage: UNK UNK, PRN5/325MG

REACTIONS (3)
  - CHOLECYSTITIS CHRONIC [None]
  - CHOLELITHIASIS [None]
  - CHOLESTEROSIS [None]
